FAERS Safety Report 10738137 (Version 1)
Quarter: 2015Q1

REPORT INFORMATION
  Report Type: Spontaneous
  Country: US (occurrence: US)
  Receive Date: 20150126
  Receipt Date: 20150126
  Transmission Date: 20150721
  Serious: Yes (Death, Hospitalization, Other)
  Sender: FDA-Public Use
  Company Number: US-UCBSA-2015001787

PATIENT
  Age: 54 Year
  Sex: Female

DRUGS (4)
  1. HYDROCODONE BITARTRATE AND ACETAMINOPHEN [Suspect]
     Active Substance: ACETAMINOPHEN\HYDROCODONE BITARTRATE
     Indication: PRODUCT USED FOR UNKNOWN INDICATION
     Dosage: UNKNOWN DOSE
     Route: 048
  2. HYDROMORPHONE [Suspect]
     Active Substance: HYDROMORPHONE
     Indication: PRODUCT USED FOR UNKNOWN INDICATION
     Dosage: UNKNOWN DOSE
     Route: 048
  3. DEXLANSOPRAZOLE [Suspect]
     Active Substance: DEXLANSOPRAZOLE
     Indication: PRODUCT USED FOR UNKNOWN INDICATION
     Dosage: UNKNOWN DOSE
     Route: 048
  4. ALPRAZOLAM. [Suspect]
     Active Substance: ALPRAZOLAM
     Indication: PRODUCT USED FOR UNKNOWN INDICATION
     Route: 048

REACTIONS (2)
  - Cardio-respiratory arrest [Fatal]
  - Completed suicide [Fatal]
